FAERS Safety Report 8501731-4 (Version None)
Quarter: 2012Q3

REPORT INFORMATION
  Report Type: 
  Country: None (occurrence: None)
  Receive Date: 20120711
  Receipt Date: 20120705
  Transmission Date: 20120928
  Serious: No
  Sender: FDA-Public Use
  Company Number: US-BIOGENIDEC-2012BI023802

PATIENT
  Age: 38 Year
  Sex: Female

DRUGS (3)
  1. TYSABRI [Suspect]
     Indication: MULTIPLE SCLEROSIS
     Route: 042
     Dates: start: 20100514
  2. ALLEGRA [Concomitant]
     Indication: PREMEDICATION
     Route: 048
     Dates: start: 20120703, end: 20120703
  3. ZANTAC [Concomitant]
     Indication: PROPHYLAXIS AGAINST DIARRHOEA
     Route: 048
     Dates: start: 20120703, end: 20120703

REACTIONS (3)
  - ABDOMINAL PAIN [None]
  - PRURITUS [None]
  - DIARRHOEA [None]
